FAERS Safety Report 6572070-6 (Version None)
Quarter: 2010Q1

REPORT INFORMATION
  Report Type: 
  Country: None (occurrence: None)
  Receive Date: 20100201
  Receipt Date: 20100115
  Transmission Date: 20100710
  Serious: Yes (Other)
  Sender: FDA-Public Use
  Company Number: 004885

PATIENT
  Sex: Female

DRUGS (7)
  1. KEPPRA [Suspect]
     Indication: EPILEPSY
     Dosage: (1500 MG QD, TAKING KEPPRA XR DURING FIRST TRIMESTER AND CONTINUING ORAL)
     Route: 048
  2. ATIVAN [Suspect]
     Indication: ANXIETY
     Dosage: (1 MG QD ORAL)
     Route: 048
     Dates: start: 20091105, end: 20091105
  3. PRENATAL VITAMINS /01549301/ [Concomitant]
  4. FOLIC ACID [Concomitant]
  5. CALCIUM [Concomitant]
  6. FISH OIL [Concomitant]
  7. TYLENOL (CAPLET) [Concomitant]

REACTIONS (6)
  - ABORTION SPONTANEOUS [None]
  - DRUG EXPOSURE DURING PREGNANCY [None]
  - INFLUENZA LIKE ILLNESS [None]
  - MYOCLONIC EPILEPSY [None]
  - PREGNANCY [None]
  - RENAL FAILURE [None]
